FAERS Safety Report 8127455-3 (Version None)
Quarter: 2012Q1

REPORT INFORMATION
  Report Type: 
  Country: None (occurrence: None)
  Receive Date: 20120210
  Receipt Date: 20120131
  Transmission Date: 20120608
  Serious: Yes (Hospitalization)
  Sender: FDA-Public Use
  Company Number: JP-AMGEN-JPNCT2011065259

PATIENT
  Age: 75 Year
  Sex: Male
  Weight: 54 kg

DRUGS (15)
  1. OXALIPLATIN [Suspect]
     Indication: COLORECTAL CANCER
     Route: 041
     Dates: start: 20110115
  2. HIRUDOID [Concomitant]
     Indication: PROPHYLAXIS
     Dosage: UNK
     Route: 062
  3. FLUOROURACIL [Suspect]
     Route: 040
     Dates: start: 20110115
  4. CORTICOSTEROIDS [Concomitant]
     Indication: PROPHYLAXIS
     Dosage: UNK
     Route: 065
  5. FLUOROURACIL [Suspect]
     Route: 041
     Dates: start: 20110115
  6. IRINOTECAN HYDROCHLORIDE [Concomitant]
     Indication: COLORECTAL CANCER
     Route: 041
     Dates: start: 20101014, end: 20101211
  7. ANTIHISTAMINES [Concomitant]
     Indication: PROPHYLAXIS
     Dosage: UNK
     Route: 065
  8. HIRUDOID SOFT [Concomitant]
     Indication: PROPHYLAXIS
     Route: 062
  9. GLYCYRON [Concomitant]
     Dosage: UNK
     Route: 048
  10. LEVOLEUCOVORIN CALCIUM [Suspect]
     Route: 041
     Dates: start: 20110115
  11. FLUOROURACIL [Suspect]
     Indication: COLORECTAL CANCER
     Route: 040
     Dates: start: 20101014, end: 20101211
  12. FLUOROURACIL [Suspect]
     Route: 041
     Dates: start: 20101014, end: 20101211
  13. LEVOLEUCOVORIN CALCIUM [Suspect]
     Indication: COLORECTAL CANCER
     Route: 041
     Dates: start: 20101014, end: 20101211
  14. PANITUMUMAB [Suspect]
     Indication: COLORECTAL CANCER
     Dosage: 6 MG/KG, Q2WK
     Route: 041
     Dates: start: 20101014
  15. ADALAT CC [Concomitant]
     Dosage: UNK
     Route: 048

REACTIONS (3)
  - CHOLANGITIS [None]
  - NEUTROPHIL COUNT DECREASED [None]
  - STOMATITIS [None]
